FAERS Safety Report 5011735-4 (Version None)
Quarter: 2006Q2

REPORT INFORMATION
  Report Type: 
  Country: None (occurrence: None)
  Receive Date: 20060523
  Receipt Date: 20060523
  Transmission Date: 20061013
  Serious: Yes (Disabling)
  Sender: FDA-Public Use
  Company Number: None

PATIENT
  Age: 60 Year
  Sex: Female
  Weight: 47.6277 kg

DRUGS (1)
  1. ADVAIR DISKUS 250/50 [Suspect]
     Indication: ASTHMA
     Dosage: 1 PUFF 2X DAY PO
     Route: 048
     Dates: start: 20041111, end: 20060516

REACTIONS (9)
  - COUGH [None]
  - HEADACHE [None]
  - MUSCULAR WEAKNESS [None]
  - MYALGIA [None]
  - PAIN [None]
  - PARAESTHESIA [None]
  - PHARYNGEAL OEDEMA [None]
  - STOMATITIS [None]
  - THROAT IRRITATION [None]
